FAERS Safety Report 8821243 (Version 2)
Quarter: 2013Q3

REPORT INFORMATION
  Report Type: Spontaneous
  Country: CA (occurrence: CA)
  Receive Date: 20121002
  Receipt Date: 20130701
  Transmission Date: 20140515
  Serious: No
  Sender: FDA-Public Use
  Company Number: CA-UCBSA-067891

PATIENT
  Age: 26 Year
  Sex: Male

DRUGS (4)
  1. VIMPAT [Suspect]
     Indication: EPILEPSY
     Dosage: VIMPAT 100MG TABLETS
     Route: 048
     Dates: start: 201207, end: 2012
  2. VIMPAT [Suspect]
     Indication: EPILEPSY
     Dosage: UNKNOWN DOSE
     Route: 048
  3. SEROQUEL [Concomitant]
     Indication: ABNORMAL BEHAVIOUR
     Dosage: NO OF INTAKES: HS
     Route: 048
  4. DIVALPROEX SODIUM [Concomitant]
     Dosage: UNKNOWN DOSE

REACTIONS (2)
  - Head banging [Recovered/Resolved]
  - Self injurious behaviour [Recovered/Resolved]
